FAERS Safety Report 6252017-2 (Version None)
Quarter: 2009Q2

REPORT INFORMATION
  Report Type: 
  Country: None (occurrence: None)
  Receive Date: 20090630
  Receipt Date: 20050720
  Transmission Date: 20091009
  Serious: Yes (Death, Hospitalization)
  Sender: FDA-Public Use
  Company Number: US-ROCHE-638471

PATIENT
  Sex: Male

DRUGS (10)
  1. ENFUVIRTIDE [Suspect]
     Route: 065
     Dates: start: 20050301, end: 20080701
  2. ZERIT [Concomitant]
     Dates: start: 20020111, end: 20051104
  3. VIDEX EC [Concomitant]
     Dosage: FREQUENCY: QD.
     Dates: start: 20040405, end: 20051104
  4. APTIVUS [Concomitant]
     Dosage: FREQUENCY: QD.
     Dates: start: 20041104
  5. APTIVUS [Concomitant]
     Dosage: FREQUENCY: QD.
     Dates: start: 20051104, end: 20080701
  6. ZIAGEN [Concomitant]
     Dosage: FREQUENCY: QD.
     Dates: start: 20050927, end: 20070101
  7. EPZICOM [Concomitant]
     Dosage: FREQUENCY: QD. DOSING AMOUNT ALSO MENTIONED AS 1 TABLET.
     Dates: start: 20051104, end: 20080701
  8. NORVIR [Concomitant]
     Dates: start: 20051104, end: 20080701
  9. PREZISTA [Concomitant]
     Dates: start: 20060630, end: 20080701
  10. ISENTRESS [Concomitant]
     Dates: start: 20071025, end: 20080701

REACTIONS (4)
  - CORONARY ARTERY DISEASE [None]
  - DEATH [None]
  - HIV INFECTION [None]
  - PHARYNGITIS [None]
